FAERS Safety Report 7054219-4 (Version None)
Quarter: 2010Q4

REPORT INFORMATION
  Report Type: 
  Country: None (occurrence: None)
  Receive Date: 20101020
  Receipt Date: 20101006
  Transmission Date: 20110411
  Serious: Yes (Other)
  Sender: FDA-Public Use
  Company Number: PHHY2010CA66905

PATIENT

DRUGS (2)
  1. ALISKIREN ALI+ [Suspect]
     Dosage: UNK
  2. ANGIOTENSIN II ANTAGONISTS [Concomitant]

REACTIONS (1)
  - ARRHYTHMIA [None]
